FAERS Safety Report 15199538 (Version 1)
Quarter: 2018Q3

REPORT INFORMATION
  Report Type: Spontaneous
  Country: US (occurrence: US)
  Receive Date: 20180725
  Receipt Date: 20180725
  Transmission Date: 20181010
  Serious: Yes (Hospitalization)
  Sender: FDA-Public Use
  Company Number: US-PACIRA PHARMACEUTICALS, INC.-2018EXPUS00624

PATIENT

DRUGS (1)
  1. EXPAREL [Suspect]
     Active Substance: BUPIVACAINE
     Indication: SPINAL MANIPULATION
     Dosage: UNK UNK, UNK
     Route: 065

REACTIONS (2)
  - Hypokinesia [Recovered/Resolved]
  - Pain [Unknown]
